FAERS Safety Report 7262260-1 (Version None)
Quarter: 2011Q1

REPORT INFORMATION
  Report Type: 
  Country: None (occurrence: None)
  Receive Date: 20110130
  Receipt Date: 20101129
  Transmission Date: 20110831
  Serious: No
  Sender: FDA-Public Use
  Company Number: US-ABBOTT-10P-163-0687744-00

PATIENT
  Sex: Female
  Weight: 46.308 kg

DRUGS (17)
  1. UNKNOWN ACID MEDICATION [Concomitant]
     Indication: GASTROOESOPHAGEAL REFLUX DISEASE
     Route: 048
  2. VESICARE [Concomitant]
     Indication: URINARY INCONTINENCE
     Route: 048
  3. EFFEXOR XR [Concomitant]
     Indication: PAIN
  4. METFORMIN [Concomitant]
     Indication: DIABETES MELLITUS
     Route: 048
  5. MIRAPEX [Concomitant]
     Indication: CARDIAC DISORDER
     Route: 048
  6. OXYCONTIN [Concomitant]
     Indication: PAIN
     Route: 048
  7. ZOCOR [Concomitant]
     Indication: BLOOD CHOLESTEROL INCREASED
     Route: 048
  8. FERROUS SULFATE TAB [Concomitant]
     Indication: ANAEMIA
     Route: 048
  9. PERCOCET [Concomitant]
     Indication: PAIN
     Route: 048
  10. VITAMIN B-12 [Concomitant]
     Indication: ANAEMIA
     Route: 058
  11. TOPAMAX [Concomitant]
     Indication: NEUROPATHY PERIPHERAL
     Route: 048
  12. PREDNISONE [Concomitant]
     Indication: ARTHRALGIA
     Route: 048
     Dates: start: 19850101
  13. RECLAST [Concomitant]
     Indication: OSTEOPOROSIS
     Route: 042
  14. WARFARIN [Concomitant]
     Indication: COAGULOPATHY
     Dosage: AS DIRECTED
     Route: 048
  15. HUMIRA [Suspect]
     Indication: RHEUMATOID ARTHRITIS
     Route: 058
     Dates: start: 20070101, end: 20101201
  16. SENOKOT [Concomitant]
     Indication: CONSTIPATION PROPHYLAXIS
     Route: 048
  17. EFFEXOR XR [Concomitant]
     Indication: DEPRESSION
     Route: 048

REACTIONS (2)
  - ARTHRALGIA [None]
  - WOUND INFECTION [None]
